FAERS Safety Report 12448040 (Version 1)
Quarter: 2016Q2

REPORT INFORMATION
  Report Type: Spontaneous
  Country: JP (occurrence: JP)
  Receive Date: 20160608
  Receipt Date: 20160608
  Transmission Date: 20160815
  Serious: Yes (Other)
  Sender: FDA-Public Use
  Company Number: PHJP1900JP000920

PATIENT
  Sex: Male
  Weight: 49.4 kg

DRUGS (3)
  1. SANDIMMUN [Suspect]
     Active Substance: CYCLOSPORINE
     Indication: BEHCET^S SYNDROME
     Dosage: 250 MG, QD
     Route: 048
     Dates: start: 19891026, end: 19891124
  2. RANTUDIL [Suspect]
     Active Substance: ACEMETACIN
     Indication: BEHCET^S SYNDROME
     Dosage: 90 MG, QD
     Route: 048
     Dates: start: 19890922
  3. SANDIMMUN [Suspect]
     Active Substance: CYCLOSPORINE
     Dosage: 200 MG, QD
     Route: 048
     Dates: start: 19891125, end: 19891207

REACTIONS (1)
  - Behcet^s syndrome [Recovered/Resolved]
